FAERS Safety Report 4364396-1 (Version None)
Quarter: 2004Q2

REPORT INFORMATION
  Report Type: 
  Country: None (occurrence: None)
  Receive Date: 20040521
  Receipt Date: 20040517
  Transmission Date: 20050107
  Serious: Yes (Death)
  Sender: FDA-Public Use
  Company Number: 04-05-0702

PATIENT
  Sex: Male

DRUGS (3)
  1. CLOZAPINE [Suspect]
     Indication: SCHIZOAFFECTIVE DISORDER
     Dosage: 375-475MG QD ORAL
     Route: 048
     Dates: start: 19980401, end: 20040401
  2. FIBERCON [Concomitant]
  3. COLACE 20OMG [Concomitant]

REACTIONS (1)
  - INTESTINAL PERFORATION [None]
